FAERS Safety Report 4435595-5 (Version None)
Quarter: 2004Q3

REPORT INFORMATION
  Report Type: 
  Country: None (occurrence: None)
  Receive Date: 20040726
  Receipt Date: 20040504
  Transmission Date: 20050211
  Serious: No
  Sender: FDA-Public Use
  Company Number: USA040566650

PATIENT
  Age: 56 Year
  Sex: Female

DRUGS (1)
  1. FORTEO [Suspect]
     Indication: OSTEOPOROSIS
     Dates: start: 20040401

REACTIONS (6)
  - BONE PAIN [None]
  - DIZZINESS [None]
  - DRY MOUTH [None]
  - DYSGEUSIA [None]
  - HEADACHE [None]
  - MUSCLE CRAMP [None]
